FAERS Safety Report 4634613-9 (Version None)
Quarter: 2005Q2

REPORT INFORMATION
  Report Type: 
  Country: None (occurrence: None)
  Receive Date: 20050413
  Receipt Date: 20050331
  Transmission Date: 20051028
  Serious: Yes (Hospitalization)
  Sender: FDA-Public Use
  Company Number: 2005-00694

PATIENT
  Sex: Male

DRUGS (1)
  1. VELCADE [Suspect]
     Indication: MULTIPLE MYELOMA
     Dosage: 1.30 MG/M2, QD, INTRAVENOUS
     Route: 042
     Dates: start: 20050329

REACTIONS (3)
  - CONFUSIONAL STATE [None]
  - CYTOLYTIC HEPATITIS [None]
  - PYREXIA [None]
